FAERS Safety Report 17917091 (Version 1)
Quarter: 2020Q2

REPORT INFORMATION
  Report Type: Report from Study
  Country: RU (occurrence: RU)
  Receive Date: 20200619
  Receipt Date: 20200619
  Transmission Date: 20200714
  Serious: Yes (Other)
  Sender: FDA-Public Use
  Company Number: RU-TEVA-2020-RU-1788038

PATIENT
  Age: 48 Year
  Sex: Female

DRUGS (15)
  1. METOCLOPRAMIDE. [Concomitant]
     Active Substance: METOCLOPRAMIDE
  2. LOPERAMIDE [Concomitant]
     Active Substance: LOPERAMIDE
  3. DEXAMETHASONE. [Concomitant]
     Active Substance: DEXAMETHASONE
  4. CISPLATIN-TEVA [Suspect]
     Active Substance: CISPLATIN
     Indication: CERVIX CARCINOMA STAGE III
     Dosage: 3 CYCLES, AT A DOSE OF 66 MG 16-APR-2020, 23-APR-2020, 30-APR-2020
     Route: 065
  5. OMEPRAZOLE. [Concomitant]
     Active Substance: OMEPRAZOLE
  6. RINGERS SOLUTION [Concomitant]
     Active Substance: CALCIUM CHLORIDE\POTASSIUM CHLORIDE\SODIUM CHLORIDE
  7. PANCREATIN [Concomitant]
     Active Substance: PANCRELIPASE
  8. DROTAVERIN [Concomitant]
     Active Substance: DROTAVERINE
  9. PARACETAMOL [Concomitant]
     Active Substance: ACETAMINOPHEN
  10. CIPROFLOXACIN. [Concomitant]
     Active Substance: CIPROFLOXACIN
  11. PLATIFILLIN HYDROTARTRATE [Concomitant]
  12. KETOROLAC [Concomitant]
     Active Substance: KETOROLAC TROMETHAMINE
  13. HYDROXYZINE [Concomitant]
     Active Substance: HYDROXYZINE HYDROCHLORIDE
  14. CHLOROPYRAMINE [Concomitant]
     Active Substance: CHLOROPYRAMINE
  15. SALINE [Concomitant]
     Active Substance: SODIUM CHLORIDE

REACTIONS (1)
  - Pancytopenia [Recovering/Resolving]
